FAERS Safety Report 16675111 (Version 5)
Quarter: 2019Q3

REPORT INFORMATION
  Report Type: Spontaneous
  Country: PL (occurrence: PL)
  Receive Date: 20190806
  Receipt Date: 20190918
  Transmission Date: 20191004
  Serious: Yes (Life-Threatening, Hospitalization, Other)
  Sender: FDA-Public Use
  Company Number: PL-JNJFOC-20190802146

PATIENT
  Age: 31 Year
  Sex: Female

DRUGS (8)
  1. THIAMAZOLE [Suspect]
     Active Substance: METHIMAZOLE
     Indication: PRODUCT USED FOR UNKNOWN INDICATION
     Dosage: 20 MG, PER DAY
     Route: 065
  2. LITHIUM CARBONATE. [Suspect]
     Active Substance: LITHIUM CARBONATE
     Indication: BRIEF PSYCHOTIC DISORDER, WITH POSTPARTUM ONSET
     Route: 065
     Dates: start: 201609, end: 201609
  3. HALOPERIDOL. [Suspect]
     Active Substance: HALOPERIDOL
     Indication: BRIEF PSYCHOTIC DISORDER, WITH POSTPARTUM ONSET
     Dosage: UNK
     Route: 065
  4. OLANZAPINE. [Suspect]
     Active Substance: OLANZAPINE
     Indication: BRIEF PSYCHOTIC DISORDER, WITH POSTPARTUM ONSET
     Dosage: 20 MG, PER DAY
     Route: 065
     Dates: start: 201609, end: 201609
  5. THIAMAZOLE [Suspect]
     Active Substance: METHIMAZOLE
     Dosage: 5 UG, PER DAY
     Route: 065
  6. LORAZEPAM. [Suspect]
     Active Substance: LORAZEPAM
     Indication: NEUROLEPTIC MALIGNANT SYNDROME
  7. HALOPERIDOL. [Suspect]
     Active Substance: HALOPERIDOL
     Indication: BRIEF PSYCHOTIC DISORDER, WITH POSTPARTUM ONSET
     Route: 065
  8. LEVOTHYROXINE. [Suspect]
     Active Substance: LEVOTHYROXINE
     Indication: PRODUCT USED FOR UNKNOWN INDICATION
     Dosage: 25 UG, PER DAY
     Route: 065

REACTIONS (18)
  - Anxiety [Recovered/Resolved]
  - Speech disorder [Recovered/Resolved]
  - Crying [Recovered/Resolved]
  - Delusion [Recovered/Resolved]
  - Delusion of reference [Recovered/Resolved]
  - Psychomotor hyperactivity [Recovered/Resolved]
  - Blood thyroid stimulating hormone decreased [Recovered/Resolved]
  - Abnormal behaviour [Recovered/Resolved]
  - Drug ineffective [Unknown]
  - Behaviour disorder [Recovered/Resolved]
  - Stubbornness [Recovered/Resolved]
  - Skin lesion [Unknown]
  - Feeling guilty [Recovered/Resolved]
  - Hallucination, auditory [Recovered/Resolved]
  - Distractibility [Recovered/Resolved]
  - Neuroleptic malignant syndrome [Recovered/Resolved]
  - Depression [Recovered/Resolved]
  - Persecutory delusion [Recovered/Resolved]
